FAERS Safety Report 4884544-4 (Version None)
Quarter: 2006Q1

REPORT INFORMATION
  Report Type: 
  Country: None (occurrence: None)
  Receive Date: 20060117
  Receipt Date: 20060103
  Transmission Date: 20060701
  Serious: Yes (Other)
  Sender: FDA-Public Use
  Company Number: 2005S1007992

PATIENT
  Age: 44 Year
  Sex: Male
  Weight: 86.1834 kg

DRUGS (7)
  1. TRAMADOL HCL [Suspect]
     Indication: ARTHRALGIA
     Dosage: SEE IMAGE, PO
     Route: 048
     Dates: start: 20030101, end: 20040101
  2. TRAMADOL HCL [Suspect]
     Indication: BACK PAIN
     Dosage: SEE IMAGE, PO
     Route: 048
     Dates: start: 20030101, end: 20040101
  3. TRAMADOL HCL [Suspect]
     Indication: ARTHRALGIA
     Dosage: SEE IMAGE, PO
     Route: 048
     Dates: start: 20040101
  4. TRAMADOL HCL [Suspect]
     Indication: BACK PAIN
     Dosage: SEE IMAGE, PO
     Route: 048
     Dates: start: 20040101
  5. TRAMADOL HCL [Suspect]
     Indication: ARTHRALGIA
     Dosage: SEE IMAGE, PO
     Route: 048
     Dates: start: 20040101
  6. TRAMADOL HCL [Suspect]
     Indication: BACK PAIN
     Dosage: SEE IMAGE, PO
     Route: 048
     Dates: start: 20040101
  7. PARACETAMOL/OXYCODONE HYDROCHLORIDE [Concomitant]

REACTIONS (4)
  - DRUG WITHDRAWAL SYNDROME [None]
  - HYPOAESTHESIA [None]
  - PARAESTHESIA [None]
  - TRANSIENT ISCHAEMIC ATTACK [None]
